FAERS Safety Report 15880392 (Version 1)
Quarter: 2019Q1

REPORT INFORMATION
  Report Type: Spontaneous
  Country: US (occurrence: US)
  Receive Date: 20190128
  Receipt Date: 20190128
  Transmission Date: 20190417
  Serious: Yes (Death, Congenital Anomaly, Other)
  Sender: FDA-Public Use
  Company Number: US-BIOMARINAP-US-2019-121608

PATIENT
  Age: 0 Day
  Sex: Male
  Weight: 1.45 kg

DRUGS (3)
  1. RANITIDINE. [Concomitant]
     Active Substance: RANITIDINE
     Indication: FOETAL EXPOSURE DURING PREGNANCY
     Dosage: 150 MILLIGRAM, BID
     Route: 064
  2. VITAMINS NOS [Concomitant]
     Active Substance: VITAMINS
     Indication: FOETAL EXPOSURE DURING PREGNANCY
     Dosage: UNK, QD
     Route: 064
  3. KUVAN [Suspect]
     Active Substance: SAPROPTERIN DIHYDROCHLORIDE
     Indication: FOETAL EXPOSURE DURING PREGNANCY
     Dosage: 1500 MILLIGRAM, QD
     Route: 064
     Dates: start: 2018

REACTIONS (3)
  - Hydrops foetalis [Recovered/Resolved]
  - Cardiac teratoma [Recovered/Resolved]
  - Cardiac dysfunction [Fatal]

NARRATIVE: CASE EVENT DATE: 20181001
